FAERS Safety Report 13523739 (Version 1)
Quarter: 2017Q2

REPORT INFORMATION
  Report Type: Spontaneous
  Country: US (occurrence: US)
  Receive Date: 20170508
  Receipt Date: 20170508
  Transmission Date: 20170830
  Serious: No
  Sender: FDA-Public Use
  Company Number: US-VIFOR (INTERNATIONAL) INC.-VIT-2017-02820

PATIENT
  Age: 77 Year
  Sex: Female

DRUGS (7)
  1. ASCORBIC ACID. [Concomitant]
     Active Substance: ASCORBIC ACID
     Dates: start: 20170313
  2. GARLIC. [Concomitant]
     Active Substance: GARLIC
     Dates: start: 20170313
  3. PYRIDOXINE HYDROCHLORIDE. [Concomitant]
     Active Substance: PYRIDOXINE HYDROCHLORIDE
     Dates: start: 20170313
  4. NOVOLOG [Concomitant]
     Active Substance: INSULIN ASPART
     Dates: start: 20170313
  5. BAYER LOW [Concomitant]
     Dates: start: 20170313
  6. POLYETHYLENE [Concomitant]
     Active Substance: HIGH DENSITY POLYETHYLENE
     Dates: start: 20170313
  7. VELTASSA [Suspect]
     Active Substance: PATIROMER
     Indication: HYPERKALAEMIA
     Route: 048
     Dates: start: 201702

REACTIONS (1)
  - Faeces hard [Unknown]

NARRATIVE: CASE EVENT DATE: 201703
